FAERS Safety Report 6082748-9 (Version None)
Quarter: 2009Q1

REPORT INFORMATION
  Report Type: 
  Country: None (occurrence: None)
  Receive Date: 20090218
  Receipt Date: 20090206
  Transmission Date: 20090719
  Serious: Yes (Hospitalization)
  Sender: FDA-Public Use
  Company Number: US-ELI_LILLY_AND_COMPANY-US200609005099

PATIENT
  Sex: Female
  Weight: 143.1 kg

DRUGS (6)
  1. DULOXETINE HYDROCHLORIDE [Suspect]
     Indication: DEPRESSION
     Dosage: 30 MG, 2/D
     Route: 048
     Dates: start: 20060622, end: 20060815
  2. XANAX                                   /USA/ [Concomitant]
     Indication: ANXIETY
     Dates: start: 20051119
  3. STALEVO                                 /USA/ [Concomitant]
     Indication: PARKINSON'S DISEASE
     Dates: start: 20050101
  4. SINEMET                                 /NET/ [Concomitant]
     Indication: PARKINSON'S DISEASE
     Dosage: 25100 UNK, UNK
     Dates: start: 20031112
  5. NEXIUM                                  /UNK/ [Concomitant]
     Indication: GASTROOESOPHAGEAL REFLUX DISEASE
     Dates: start: 20010101
  6. MVI                                     /USA/ [Concomitant]
     Indication: MEDICAL DIET
     Dates: start: 19960101

REACTIONS (1)
  - INTESTINAL OBSTRUCTION [None]
